FAERS Safety Report 10622414 (Version 1)
Quarter: 2014Q4

REPORT INFORMATION
  Report Type: Spontaneous
  Country: US (occurrence: None)
  Receive Date: 20141201
  Receipt Date: 20141201
  Transmission Date: 20150529
  Serious: Yes (Other)
  Sender: FDA-Public Use
  Company Number: None

PATIENT
  Age: 08 Year
  Sex: Male

DRUGS (4)
  1. METHYLPHENIDATE ER [Suspect]
     Active Substance: METHYLPHENIDATE
     Indication: ATTENTION DEFICIT/HYPERACTIVITY DISORDER
     Dosage: 1 TABLET  QD  ORAL
     Route: 048
     Dates: start: 20141122, end: 20141123
  2. DIVALPROEX DR [Concomitant]
     Active Substance: DIVALPROEX SODIUM
  3. INTUNIV [Concomitant]
     Active Substance: GUANFACINE HYDROCHLORIDE
  4. ABILIFY [Concomitant]
     Active Substance: ARIPIPRAZOLE

REACTIONS (4)
  - Obsessive-compulsive disorder [None]
  - Diet refusal [None]
  - Agitation [None]
  - Palpitations [None]

NARRATIVE: CASE EVENT DATE: 20141123
